FAERS Safety Report 25284487 (Version 2)
Quarter: 2025Q2

REPORT INFORMATION
  Report Type: Spontaneous
  Country: RU (occurrence: RU)
  Receive Date: 20250508
  Receipt Date: 20250521
  Transmission Date: 20250716
  Serious: Yes (Other)
  Sender: ALEXION PHARMACEUTICALS
  Company Number: RU-ASPEN-GLO2025RU003393

PATIENT
  Age: 11 Year
  Weight: 51.5 kg

DRUGS (10)
  1. OMEPRAZOLE [Suspect]
     Active Substance: OMEPRAZOLE
     Route: 065
  2. ROPIVACAINE [Suspect]
     Active Substance: ROPIVACAINE
     Indication: Anaesthesia
     Route: 065
  3. MORPHINE [Suspect]
     Active Substance: MORPHINE
     Indication: Anaesthesia
     Route: 065
  4. SEVOFLURANE [Suspect]
     Active Substance: SEVOFLURANE
     Indication: Anaesthesia
     Route: 065
  5. FENTANYL [Suspect]
     Active Substance: FENTANYL
     Indication: Anaesthesia
     Route: 065
  6. ROCURONIUM BROMIDE [Suspect]
     Active Substance: ROCURONIUM BROMIDE
     Indication: Anaesthesia
     Route: 065
  7. CLINDAMYCIN [Suspect]
     Active Substance: CLINDAMYCIN
     Indication: Antibiotic therapy
     Route: 065
  8. AMIKACIN [Suspect]
     Active Substance: AMIKACIN
     Indication: Antibiotic therapy
     Route: 065
  9. TRANEXAMIC ACID [Suspect]
     Active Substance: TRANEXAMIC ACID
     Indication: Product used for unknown indication
     Route: 065
  10. NOREPINEPHRINE BITARTRATE [Suspect]
     Active Substance: NOREPINEPHRINE BITARTRATE
     Indication: Hypovolaemia
     Route: 065

REACTIONS (7)
  - Pulmonary oedema [Unknown]
  - Pulmonary vascular disorder [Unknown]
  - Hypotension [Recovered/Resolved]
  - Tachyarrhythmia [Recovered/Resolved]
  - Hypocapnia [Recovered/Resolved]
  - Oxygen saturation decreased [Recovered/Resolved]
  - Lymphostasis [Unknown]
